FAERS Safety Report 6328257-0 (Version None)
Quarter: 2009Q3

REPORT INFORMATION
  Report Type: 
  Country: None (occurrence: None)
  Receive Date: 20090825
  Receipt Date: 20090128
  Transmission Date: 20100115
  Serious: No
  Sender: FDA-Public Use
  Company Number: US-ABBOTT-09P-163-0500637-00

PATIENT
  Sex: Female
  Weight: 56.75 kg

DRUGS (8)
  1. SYNTHROID [Suspect]
     Indication: HYPOTHYROIDISM
     Route: 048
     Dates: start: 20030101
  2. PROTONIX [Concomitant]
     Indication: DRUG USE FOR UNKNOWN INDICATION
     Route: 048
  3. TOPROL-XL [Concomitant]
     Indication: DRUG USE FOR UNKNOWN INDICATION
     Route: 048
  4. AVAPRO [Concomitant]
     Indication: DRUG USE FOR UNKNOWN INDICATION
     Route: 048
  5. VAGIFEM [Concomitant]
     Indication: DRUG USE FOR UNKNOWN INDICATION
     Route: 067
  6. VITAMIN D3 [Concomitant]
     Indication: DRUG USE FOR UNKNOWN INDICATION
     Route: 048
     Dates: start: 20090101
  7. ASCORBIC ACID [Concomitant]
     Indication: DRUG USE FOR UNKNOWN INDICATION
     Route: 048
     Dates: start: 20090101
  8. ASCORBIC ACID [Concomitant]
     Route: 051
     Dates: end: 20090101

REACTIONS (3)
  - BLOOD THYROID STIMULATING HORMONE ABNORMAL [None]
  - DIZZINESS [None]
  - FALL [None]
